FAERS Safety Report 5943599-6 (Version None)
Quarter: 2008Q4

REPORT INFORMATION
  Report Type: 
  Country: None (occurrence: None)
  Receive Date: 20081104
  Receipt Date: 20081026
  Transmission Date: 20090506
  Serious: Yes (Other)
  Sender: FDA-Public Use
  Company Number: CHPA2008US18626

PATIENT
  Sex: Female

DRUGS (2)
  1. BENEFIBER UNKNOWN (NCH) (UNKNOWN) UNKNOWN [Suspect]
  2. BENEFIBER W/WHEAT DEXTRIN (NCH) (WHEAT DEXTRIN) POWDER [Suspect]
     Dosage: 1 TSP, ORAL
     Route: 048

REACTIONS (2)
  - COELIAC DISEASE [None]
  - DIARRHOEA [None]
